FAERS Safety Report 7249597-7 (Version None)
Quarter: 2011Q1

REPORT INFORMATION
  Report Type: 
  Country: None (occurrence: None)
  Receive Date: 20110121
  Receipt Date: 20110121
  Transmission Date: 20110831
  Serious: No
  Sender: FDA-Public Use
  Company Number: None

PATIENT
  Sex: Male
  Weight: 10.4 kg

DRUGS (5)
  1. ONCASPAR [Suspect]
     Dosage: 1297.5 UNIT
     Dates: end: 20100927
  2. DAUNORUBICIN [Suspect]
     Dosage: 13 MG
     Dates: end: 20100924
  3. CYTARABINE [Suspect]
     Dosage: 39 NG
     Dates: end: 20100924
  4. VINCRISTINE SULFATE [Suspect]
     Dosage: .8 MG
     Dates: end: 20100924
  5. PREDNISONE [Suspect]
     Dosage: 12 MG
     Dates: end: 20100929

REACTIONS (1)
  - HYPERGLYCAEMIA [None]
